FAERS Safety Report 8473301-8 (Version None)
Quarter: 2012Q2

REPORT INFORMATION
  Report Type: 
  Country: None (occurrence: None)
  Receive Date: 20120628
  Receipt Date: 20120622
  Transmission Date: 20120825
  Serious: Yes (Other)
  Sender: FDA-Public Use
  Company Number: DE-AMGEN-DEUSP2012038647

PATIENT
  Age: 38 Year
  Sex: Female

DRUGS (2)
  1. NEUPOGEN [Suspect]
     Indication: CHEMOTHERAPY
     Dosage: UNK UNK, QD
     Dates: start: 20120613, end: 20120620
  2. ANTINEOPLASTIC AGENTS [Concomitant]
     Indication: LEUKAEMIA

REACTIONS (2)
  - LEUKOCYTOSIS [None]
  - DYSPNOEA AT REST [None]
